FAERS Safety Report 11977468 (Version 1)
Quarter: 2016Q1

REPORT INFORMATION
  Report Type: Spontaneous
  Country: GB (occurrence: GB)
  Receive Date: 20160129
  Receipt Date: 20160129
  Transmission Date: 20160526
  Serious: Yes (Other)
  Sender: FDA-Public Use
  Company Number: GB-PFIZER INC-2016043322

PATIENT
  Age: 7 Year
  Sex: Female

DRUGS (4)
  1. VINCRISTINE [Concomitant]
     Active Substance: VINCRISTINE
     Indication: NEUROBLASTOMA
     Dosage: 1.5 MG/M2, CYCLIC
  2. TENIPOSIDE. [Concomitant]
     Active Substance: TENIPOSIDE
     Indication: NEUROBLASTOMA
     Dosage: 150 MG/M2, UNK
  3. CYCLOPHOSPHAMIDE. [Suspect]
     Active Substance: CYCLOPHOSPHAMIDE
     Indication: NEUROBLASTOMA
     Dosage: 600 MG/M2, CYCLIC
  4. DOXORUBICIN [Suspect]
     Active Substance: DOXORUBICIN
     Indication: NEUROBLASTOMA
     Dosage: 40 MG/M2, CYCLIC

REACTIONS (2)
  - Acute lymphocytic leukaemia [Unknown]
  - Second primary malignancy [Unknown]
